FAERS Safety Report 14475464 (Version 1)
Quarter: 2018Q1

REPORT INFORMATION
  Report Type: Spontaneous
  Country: US (occurrence: US)
  Receive Date: 20180131
  Receipt Date: 20180131
  Transmission Date: 20180509
  Serious: Yes (Disabling)
  Sender: FDA-Public Use
  Company Number: None

PATIENT
  Age: 46 Year
  Sex: Male
  Weight: 63 kg

DRUGS (3)
  1. LEVEMIR [Concomitant]
     Active Substance: INSULIN DETEMIR
  2. TRULICITY [Suspect]
     Active Substance: DULAGLUTIDE
     Indication: DIABETES MELLITUS
     Dosage: ?          QUANTITY:1 INJECTION(S);OTHER FREQUENCY:ONCE A WEEK;OTHER ROUTE:INJECTED UNDER SKIN?
     Route: 030
     Dates: start: 20160901, end: 20161007
  3. IBUPROFEN. [Concomitant]
     Active Substance: IBUPROFEN

REACTIONS (8)
  - Impaired gastric emptying [None]
  - Feeling abnormal [None]
  - Abdominal pain upper [None]
  - Fatigue [None]
  - Constipation [None]
  - Abdominal pain [None]
  - Pancreatitis chronic [None]
  - Eructation [None]

NARRATIVE: CASE EVENT DATE: 20161008
